FAERS Safety Report 25613398 (Version 1)
Quarter: 2025Q3

REPORT INFORMATION
  Report Type: Spontaneous
  Country: EU (occurrence: EU)
  Receive Date: 20250728
  Receipt Date: 20250728
  Transmission Date: 20251021
  Serious: Yes (Other)
  Sender: MYLAN
  Company Number: None

PATIENT
  Age: 68 Year
  Sex: Male

DRUGS (20)
  1. VENLAFAXINE [Suspect]
     Active Substance: VENLAFAXINE HYDROCHLORIDE
     Indication: Product used for unknown indication
     Dosage: UNK UNK, QD, FROM 37.5 MG TO 300 MG/DAY
     Dates: start: 202406
  2. VENLAFAXINE [Suspect]
     Active Substance: VENLAFAXINE HYDROCHLORIDE
     Dosage: UNK UNK, QD, FROM 37.5 MG TO 300 MG/DAY
     Route: 048
     Dates: start: 202406
  3. VENLAFAXINE [Suspect]
     Active Substance: VENLAFAXINE HYDROCHLORIDE
     Dosage: UNK UNK, QD, FROM 37.5 MG TO 300 MG/DAY
     Route: 048
     Dates: start: 202406
  4. VENLAFAXINE [Suspect]
     Active Substance: VENLAFAXINE HYDROCHLORIDE
     Dosage: UNK UNK, QD, FROM 37.5 MG TO 300 MG/DAY
     Dates: start: 202406
  5. QUETIAPINE [Suspect]
     Active Substance: QUETIAPINE
     Indication: Product used for unknown indication
     Dosage: UNK UNK, QD, FROM 50 MG TO 300 MG/DAY
     Dates: start: 202406
  6. QUETIAPINE [Suspect]
     Active Substance: QUETIAPINE
     Dosage: UNK UNK, QD, FROM 50 MG TO 300 MG/DAY
     Route: 048
     Dates: start: 202406
  7. QUETIAPINE [Suspect]
     Active Substance: QUETIAPINE
     Dosage: UNK UNK, QD, FROM 50 MG TO 300 MG/DAY
     Route: 048
     Dates: start: 202406
  8. QUETIAPINE [Suspect]
     Active Substance: QUETIAPINE
     Dosage: UNK UNK, QD, FROM 50 MG TO 300 MG/DAY
     Dates: start: 202406
  9. BROMAZEPAM [Suspect]
     Active Substance: BROMAZEPAM
     Indication: Product used for unknown indication
     Dosage: UNK UNK, QD, UP TO 12 MG/DAY
     Dates: start: 202406
  10. BROMAZEPAM [Suspect]
     Active Substance: BROMAZEPAM
     Dosage: UNK UNK, QD, UP TO 12 MG/DAY
     Route: 048
     Dates: start: 202406
  11. BROMAZEPAM [Suspect]
     Active Substance: BROMAZEPAM
     Dosage: UNK UNK, QD, UP TO 12 MG/DAY
     Route: 048
     Dates: start: 202406
  12. BROMAZEPAM [Suspect]
     Active Substance: BROMAZEPAM
     Dosage: UNK UNK, QD, UP TO 12 MG/DAY
     Dates: start: 202406
  13. TERALITHE [Suspect]
     Active Substance: LITHIUM CARBONATE
     Indication: Product used for unknown indication
     Dosage: UNK UNK, QD, FROM 400 MG LP TO 1000 MG IR/DAY
     Dates: start: 202406
  14. TERALITHE [Suspect]
     Active Substance: LITHIUM CARBONATE
     Dosage: UNK UNK, QD, FROM 400 MG LP TO 1000 MG IR/DAY
     Route: 048
     Dates: start: 202406
  15. TERALITHE [Suspect]
     Active Substance: LITHIUM CARBONATE
     Dosage: UNK UNK, QD, FROM 400 MG LP TO 1000 MG IR/DAY
     Route: 048
     Dates: start: 202406
  16. TERALITHE [Suspect]
     Active Substance: LITHIUM CARBONATE
     Dosage: UNK UNK, QD, FROM 400 MG LP TO 1000 MG IR/DAY
     Dates: start: 202406
  17. DIAZEPAM [Suspect]
     Active Substance: DIAZEPAM
     Indication: Product used for unknown indication
     Dosage: UNK UNK, QD, UP TO 30 MG/DAY
     Dates: start: 202406
  18. DIAZEPAM [Suspect]
     Active Substance: DIAZEPAM
     Dosage: UNK UNK, QD, UP TO 30 MG/DAY
     Route: 048
     Dates: start: 202406
  19. DIAZEPAM [Suspect]
     Active Substance: DIAZEPAM
     Dosage: UNK UNK, QD, UP TO 30 MG/DAY
     Route: 048
     Dates: start: 202406
  20. DIAZEPAM [Suspect]
     Active Substance: DIAZEPAM
     Dosage: UNK UNK, QD, UP TO 30 MG/DAY
     Dates: start: 202406

REACTIONS (2)
  - Drug abuse [Not Recovered/Not Resolved]
  - Pharmaceutical nomadism [Not Recovered/Not Resolved]

NARRATIVE: CASE EVENT DATE: 20240601
